FAERS Safety Report 6422558-3 (Version None)
Quarter: 2009Q4

REPORT INFORMATION
  Report Type: 
  Country: None (occurrence: None)
  Receive Date: 20091102
  Receipt Date: 20091021
  Transmission Date: 20100525
  Serious: Yes (Hospitalization)
  Sender: FDA-Public Use
  Company Number: US-BIOGENIDEC-2009BI028061

PATIENT
  Age: 56 Year
  Sex: Female

DRUGS (3)
  1. AVONEX [Suspect]
     Indication: MULTIPLE SCLEROSIS
     Route: 030
     Dates: start: 20090601
  2. AVONEX [Suspect]
     Route: 030
     Dates: start: 20001101, end: 20030801
  3. REBIF [Concomitant]
     Indication: MULTIPLE SCLEROSIS

REACTIONS (2)
  - BLOOD GLUCOSE INCREASED [None]
  - CELLULITIS [None]
